FAERS Safety Report 21235126 (Version 1)
Quarter: 2022Q3

REPORT INFORMATION
  Report Type: Spontaneous
  Country: US (occurrence: US)
  Receive Date: 20220821
  Receipt Date: 20220821
  Transmission Date: 20221027
  Serious: No
  Sender: FDA-Public Use
  Company Number: US-BRISTOL-MYERS SQUIBB COMPANY-2022-084719

PATIENT
  Age: 94 Year
  Sex: Female

DRUGS (4)
  1. ELIQUIS [Suspect]
     Active Substance: APIXABAN
     Indication: Thrombosis prophylaxis
     Route: 048
     Dates: start: 20220706
  2. HYPOTEN [AMLODIPINE] [Concomitant]
     Indication: Product used for unknown indication
     Route: 065
  3. PREZAR [LOSARTAN] [Concomitant]
     Indication: Product used for unknown indication
     Route: 065
  4. SPIRONOLACTONE APS [Concomitant]
     Indication: Product used for unknown indication
     Route: 065

REACTIONS (1)
  - Intentional product use issue [Unknown]

NARRATIVE: CASE EVENT DATE: 20220706
